FAERS Safety Report 25240209 (Version 1)
Quarter: 2025Q2

REPORT INFORMATION
  Report Type: Spontaneous
  Country: CA (occurrence: CA)
  Receive Date: 20250425
  Receipt Date: 20250425
  Transmission Date: 20250716
  Serious: Yes (Death)
  Sender: PFIZER
  Company Number: CA-PFIZER INC-202500087630

PATIENT
  Age: 64 Year
  Sex: Male

DRUGS (8)
  1. HYDROMORPHONE HYDROCHLORIDE [Suspect]
     Active Substance: HYDROMORPHONE HYDROCHLORIDE
  2. BENZOYLECGONINE [Suspect]
     Active Substance: BENZOYLECGONINE
  3. CAFFEINE [Suspect]
     Active Substance: CAFFEINE
  4. CITALOPRAM HYDROBROMIDE [Suspect]
     Active Substance: CITALOPRAM HYDROBROMIDE
  5. COCAINE [Suspect]
     Active Substance: COCAINE
  6. FENTANYL [Suspect]
     Active Substance: FENTANYL
  7. NARCAN [Suspect]
     Active Substance: NALOXONE HYDROCHLORIDE
  8. NICOTINE [Suspect]
     Active Substance: NICOTINE

REACTIONS (1)
  - Toxicity to various agents [Fatal]
